FAERS Safety Report 8935473 (Version 1)
Quarter: 2012Q4

REPORT INFORMATION
  Report Type: Spontaneous
  Country: US (occurrence: None)
  Receive Date: 20121128
  Receipt Date: 20121128
  Transmission Date: 20130627
  Serious: Yes (Hospitalization)
  Sender: FDA-Public Use
  Company Number: None

PATIENT
  Age: 84 Year
  Sex: Male
  Weight: 94.3 kg

DRUGS (10)
  1. COUMADIN [Suspect]
     Indication: ATRIAL FIBRILLATION
     Dosage: recent restart
     Route: 048
  2. ENOXAPARIN [Suspect]
     Indication: DVT PROPHYLAXIS
     Dosage: post up from 9/6- 9/7
     Route: 058
  3. MVI [Concomitant]
  4. FISH OIL [Concomitant]
  5. LISINOPRIL [Concomitant]
  6. HCTZ [Concomitant]
  7. AMLODIPINE [Concomitant]
  8. BESYLATE [Concomitant]
  9. ATORVASTATIN [Concomitant]
  10. ENOXAPARIN [Concomitant]

REACTIONS (6)
  - Nausea [None]
  - Retroperitoneal haematoma [None]
  - Gastritis [None]
  - Hiatus hernia [None]
  - Haemorrhagic anaemia [None]
  - Inguinal hernia repair [None]
